FAERS Safety Report 23295868 (Version 1)
Quarter: 2023Q4

REPORT INFORMATION
  Report Type: Spontaneous
  Country: IT (occurrence: IT)
  Receive Date: 20231214
  Receipt Date: 20231214
  Transmission Date: 20240110
  Serious: Yes (Other)
  Sender: FDA-Public Use
  Company Number: None

PATIENT
  Age: 80 Year
  Sex: Female

DRUGS (6)
  1. EDOXABAN TOSYLATE [Suspect]
     Active Substance: EDOXABAN TOSYLATE
     Indication: Atrial fibrillation
     Dosage: 60 MG, QD, COATED TABLET
     Route: 048
     Dates: start: 20230210, end: 202309
  2. EDOXABAN TOSYLATE [Suspect]
     Active Substance: EDOXABAN TOSYLATE
     Dosage: UNK, DOSE REDUCED
  3. BISOPROLOL [Concomitant]
     Active Substance: BISOPROLOL\BISOPROLOL FUMARATE
     Indication: Hypertensive heart disease
     Dosage: 2 DF (1.25 MG), QD
     Route: 048
     Dates: start: 2023
  4. BARNIDIPINE HYDROCHLORIDE [Concomitant]
     Active Substance: BARNIDIPINE HYDROCHLORIDE
     Indication: Product used for unknown indication
     Dosage: 10 MG, QD (IN THE EVENING)
     Route: 048
     Dates: start: 2023
  5. ZETIA [Concomitant]
     Active Substance: EZETIMIBE
     Indication: Dyslipidaemia
     Dosage: 10 MG, QD (IN THE EVENING)
     Route: 048
     Dates: start: 2023
  6. ZESTRIL [Concomitant]
     Active Substance: LISINOPRIL
     Indication: Hypertensive heart disease
     Dosage: 0.5 DF, BID
     Route: 048
     Dates: start: 2023

REACTIONS (3)
  - Renal failure [Recovered/Resolved]
  - Blood creatinine increased [Recovering/Resolving]
  - Glomerular filtration rate decreased [Recovering/Resolving]

NARRATIVE: CASE EVENT DATE: 20230601
